FAERS Safety Report 9150310 (Version 1)
Quarter: 2013Q1

REPORT INFORMATION
  Report Type: Spontaneous
  Country: US (occurrence: US)
  Receive Date: 20130308
  Receipt Date: 20130308
  Transmission Date: 20140127
  Serious: Yes (Other)
  Sender: FDA-Public Use
  Company Number: US-ROCHE-1197504

PATIENT
  Sex: Female

DRUGS (3)
  1. BONIVA [Suspect]
     Indication: OSTEOPOROSIS
     Route: 065
     Dates: start: 200607, end: 201108
  2. FOSAMAX [Suspect]
     Indication: OSTEOPOROSIS
     Route: 065
     Dates: start: 2001, end: 200601
  3. ACTONEL [Suspect]
     Indication: OSTEOPOROSIS
     Route: 065
     Dates: start: 200601, end: 200607

REACTIONS (4)
  - Femur fracture [Unknown]
  - Low turnover osteopathy [Unknown]
  - Emotional distress [Unknown]
  - Anxiety [Unknown]
